FAERS Safety Report 8787429 (Version 1)
Quarter: 2012Q4

REPORT INFORMATION
  Report Type: Report from Study
  Country: US (occurrence: US)
  Receive Date: 20120914
  Receipt Date: 20120914
  Transmission Date: 20130627
  Serious: No
  Sender: FDA-Public Use
  Company Number: US-VERTEX PHARMACEUTICAL INC.-AE-2012-008586

PATIENT
  Sex: Female
  Weight: 94.3 kg

DRUGS (12)
  1. INCIVEK [Suspect]
     Indication: HEPATITIS C
     Route: 048
     Dates: start: 20120322
  2. PEGASYS [Concomitant]
     Indication: HEPATITIS C
     Route: 058
     Dates: start: 20120322
  3. RIBASPHERE [Concomitant]
     Indication: HEPATITIS C
     Route: 048
     Dates: start: 20120322
  4. ZOFRAN [Concomitant]
     Route: 048
  5. PROZAC [Concomitant]
     Route: 048
  6. LYRICA [Concomitant]
     Route: 048
  7. CLONAZEPAM [Concomitant]
     Route: 048
  8. TRAZODONE [Concomitant]
     Route: 048
  9. ADDERALL XR [Concomitant]
     Route: 048
  10. NORCO [Concomitant]
     Route: 048
  11. CVS VITAMIN D [Concomitant]
     Route: 048
  12. GNP MELATONIN [Concomitant]
     Route: 048

REACTIONS (3)
  - Dyspnoea [Unknown]
  - Pain [Unknown]
  - Anaemia [Unknown]
